FAERS Safety Report 5506120-2 (Version None)
Quarter: 2007Q4

REPORT INFORMATION
  Report Type: 
  Country: None (occurrence: None)
  Receive Date: 20071105
  Receipt Date: 20071026
  Transmission Date: 20080405
  Serious: Yes (Life-Threatening, Hospitalization, Other)
  Sender: FDA-Public Use
  Company Number: GB-BRISTOL-MYERS SQUIBB COMPANY-13967872

PATIENT
  Age: 69 Year
  Sex: Male

DRUGS (7)
  1. METFORMIN HCL [Suspect]
     Indication: DIABETES MELLITUS
     Dosage: JAN-2007-2/DAY,17-SEP-2007- 3/DAY(DOSE INCREASED),27-SEP-2007 TO 06-OCT-2007- 2000MG.
     Route: 048
     Dates: start: 20070101, end: 20071006
  2. ASPIRIN [Concomitant]
     Indication: ANTICOAGULANT THERAPY
     Dates: start: 20051004, end: 20071006
  3. ATORVASTATIN CALCIUM [Concomitant]
     Indication: HYPERCHOLESTEROLAEMIA
     Route: 048
     Dates: start: 20051204
  4. BISOPROLOL FUMARATE [Concomitant]
     Route: 048
     Dates: start: 20051204
  5. GLICLAZIDE [Concomitant]
     Indication: DIABETES MELLITUS
     Route: 048
     Dates: start: 20051204
  6. GLYCERYL TRINITRATE [Concomitant]
     Indication: CHEST PAIN
  7. RAMIPRIL [Concomitant]
     Route: 048
     Dates: start: 20051204

REACTIONS (9)
  - ABDOMINAL PAIN [None]
  - AMNESIA [None]
  - ANOREXIA [None]
  - CARDIAC FLUTTER [None]
  - CHEST DISCOMFORT [None]
  - DYSPNOEA [None]
  - FLATULENCE [None]
  - MALAISE [None]
  - PALLOR [None]
